FAERS Safety Report 25542078 (Version 2)
Quarter: 2025Q3

REPORT INFORMATION
  Report Type: Spontaneous
  Country: US (occurrence: None)
  Receive Date: 20250711
  Receipt Date: 20250721
  Transmission Date: 20251020
  Serious: No
  Sender: Alvotech
  Company Number: US-ALVOTECHPMS-2025-ALVOTECHPMS-004554

PATIENT
  Age: 17 Year
  Sex: Male

DRUGS (1)
  1. ADALIMUMAB-RYVK [Suspect]
     Active Substance: ADALIMUMAB-RYVK
     Indication: Crohn^s disease
     Dosage: EVERY OTHER WEEK
     Route: 058
     Dates: start: 202501

REACTIONS (1)
  - Injection site pain [Not Recovered/Not Resolved]

NARRATIVE: CASE EVENT DATE: 20250101
